FAERS Safety Report 20667620 (Version 1)
Quarter: 2022Q2

REPORT INFORMATION
  Report Type: Spontaneous
  Country: JP (occurrence: JP)
  Receive Date: 20220404
  Receipt Date: 20220404
  Transmission Date: 20220720
  Serious: Yes (Hospitalization)
  Sender: FDA-Public Use
  Company Number: JP-ALXN-A202201653

PATIENT
  Age: 45 Year
  Sex: Male

DRUGS (3)
  1. SOLIRIS [Suspect]
     Active Substance: ECULIZUMAB
     Indication: Myasthenia gravis
     Dosage: 900 MG, QW
     Route: 042
     Dates: start: 20220119, end: 20220126
  2. COVID-19 Vaccine [Concomitant]
     Indication: COVID-19 immunisation
     Dosage: UNK, SINGLE
     Route: 030
     Dates: start: 20210624, end: 20210624
  3. COVID-19 Vaccine [Concomitant]
     Dosage: UNK, SINGLE
     Route: 030
     Dates: start: 20210715, end: 20210715

REACTIONS (2)
  - COVID-19 [Recovering/Resolving]
  - SARS-CoV-2 test positive [Recovering/Resolving]

NARRATIVE: CASE EVENT DATE: 20220130
